FAERS Safety Report 6937644-9 (Version None)
Quarter: 2010Q3

REPORT INFORMATION
  Report Type: 
  Country: None (occurrence: None)
  Receive Date: 20100820
  Receipt Date: 20100820
  Transmission Date: 20110219
  Serious: Yes (Other)
  Sender: FDA-Public Use
  Company Number: None

PATIENT
  Sex: Female
  Weight: 61.8 kg

DRUGS (1)
  1. FEMHRT [Suspect]
     Indication: MIGRAINE
     Dosage: ONE TABLET (28 TOTAL) DAILY ORALLY
     Route: 048
     Dates: start: 20100422

REACTIONS (7)
  - ABDOMINAL PAIN UPPER [None]
  - BACK PAIN [None]
  - BREAST MASS [None]
  - BREAST PAIN [None]
  - BREAST TENDERNESS [None]
  - CHOLELITHIASIS [None]
  - NAUSEA [None]
